FAERS Safety Report 10277697 (Version 3)
Quarter: 2014Q3

REPORT INFORMATION
  Report Type: Spontaneous
  Country: PL (occurrence: PL)
  Receive Date: 20140704
  Receipt Date: 20140829
  Transmission Date: 20150326
  Serious: Yes (Death, Life-Threatening, Hospitalization)
  Sender: FDA-Public Use
  Company Number: PL-ROCHE-1429327

PATIENT
  Sex: Female
  Weight: 46.6 kg

DRUGS (5)
  1. DOLTARD (POLAND) [Concomitant]
     Route: 048
     Dates: start: 20140626
  2. FLUCONAZOLE. [Concomitant]
     Active Substance: FLUCONAZOLE
     Route: 048
     Dates: start: 20140626
  3. PANTOPRAZOLE [Concomitant]
     Active Substance: PANTOPRAZOLE SODIUM
     Route: 048
     Dates: start: 20140626
  4. DEXAMETHASONE. [Concomitant]
     Active Substance: DEXAMETHASONE
     Route: 048
     Dates: start: 20140626
  5. MABTHERA [Suspect]
     Active Substance: RITUXIMAB
     Indication: RHEUMATOID ARTHRITIS
     Route: 042
     Dates: start: 20100714, end: 20131025

REACTIONS (7)
  - Dehydration [Unknown]
  - Decubitus ulcer [Unknown]
  - Respiratory failure [Fatal]
  - Plasma cell myeloma [Not Recovered/Not Resolved]
  - Vomiting [Unknown]
  - Hyperkalaemia [Unknown]
  - Hypernatraemia [Unknown]
